FAERS Safety Report 8340224-4 (Version None)
Quarter: 2012Q2

REPORT INFORMATION
  Report Type: 
  Country: None (occurrence: None)
  Receive Date: 20120507
  Receipt Date: 20120425
  Transmission Date: 20120825
  Serious: Yes (Hospitalization, Other)
  Sender: FDA-Public Use
  Company Number: PHHY2012FR036825

PATIENT
  Sex: Female
  Weight: 50 kg

DRUGS (6)
  1. MYCOPHENOLATE MOFETIL (CELLCEPT) [Concomitant]
     Dosage: 750 MG, BID
  2. VALACYCLOVIR HYDROCHLORIDE [Concomitant]
     Dosage: 1 G, TID
  3. PREDNISONE TAB [Concomitant]
     Dosage: 5 MG, UNK
  4. PRAVASTATIN [Concomitant]
     Dosage: 20 MG, UNK
  5. CERTICAN [Suspect]
     Indication: HEART TRANSPLANT
     Dosage: 1.25 MG, TWO SINGLE DOSES AT ONCE
     Dates: start: 20081210
  6. PROGRAF [Concomitant]
     Dosage: 1 MG, BID

REACTIONS (6)
  - DIARRHOEA [None]
  - PLEURAL EFFUSION [None]
  - EFFUSION [None]
  - LUNG DISORDER [None]
  - INFECTION [None]
  - ABDOMINAL PAIN [None]
